FAERS Safety Report 17290119 (Version 2)
Quarter: 2020Q2

REPORT INFORMATION
  Report Type: Report from Study
  Country: US (occurrence: US)
  Receive Date: 20200120
  Receipt Date: 20200423
  Transmission Date: 20200713
  Serious: No
  Sender: FDA-Public Use
  Company Number: NVSC2020US012642

PATIENT
  Sex: Male

DRUGS (1)
  1. COSENTYX [Suspect]
     Active Substance: SECUKINUMAB
     Indication: PSORIASIS
     Dosage: 150 MG, QMO
     Route: 058

REACTIONS (4)
  - Psoriasis [Unknown]
  - Skin lesion [Unknown]
  - Anxiety [Unknown]
  - Chronic obstructive pulmonary disease [Not Recovered/Not Resolved]
